FAERS Safety Report 6026842-7 (Version None)
Quarter: 2009Q1

REPORT INFORMATION
  Report Type: 
  Country: None (occurrence: None)
  Receive Date: 20090105
  Receipt Date: 20081229
  Transmission Date: 20090719
  Serious: Yes (Hospitalization)
  Sender: FDA-Public Use
  Company Number: KR-BRISTOL-MYERS SQUIBB COMPANY-14436265

PATIENT
  Age: 62 Year
  Sex: Male
  Weight: 40 kg

DRUGS (3)
  1. CETUXIMAB [Suspect]
     Indication: GASTROOESOPHAGEAL CANCER
     Dosage: STRENGTH-5MG/ML. RECENT INFUSION WAS ON 27NOV08. INTERRUPTED ON 04DEC08;RESTARTED ON 24DEC08.
     Route: 042
     Dates: start: 20081001
  2. CISPLATIN [Suspect]
     Indication: GASTROOESOPHAGEAL CANCER
     Dosage: GIVEN ON DAY 1 OF THE CYCLE. RECEIVED THE MOST RECENT INFUSION ON 30OCT08. INTERRUPTED ON 27NOV08.
     Route: 042
     Dates: start: 20081001
  3. CAPECITABINE [Suspect]
     Indication: GASTROOESOPHAGEAL CANCER
     Dosage: GIVEN ON DAY 1-15. FORM-TAB. RECEIVED MOST RECENT INFUSION ON 13NOV08. INTERRUPTED ON 14NOV08.
     Route: 048
     Dates: start: 20081001

REACTIONS (1)
  - HEPATOTOXICITY [None]
